FAERS Safety Report 5838050-0 (Version None)
Quarter: 2008Q3

REPORT INFORMATION
  Report Type: 
  Country: None (occurrence: None)
  Receive Date: 20080808
  Receipt Date: 20080331
  Transmission Date: 20090109
  Serious: No
  Sender: FDA-Public Use
  Company Number: A0721910A

PATIENT
  Age: 62 Year
  Sex: Female

DRUGS (10)
  1. PAROXETINE HCL [Suspect]
     Indication: DEPRESSION
     Dosage: 60MG PER DAY
     Route: 048
     Dates: start: 19980301
  2. ZETIA [Concomitant]
     Dosage: 10MG UNKNOWN
     Route: 048
  3. COZAAR [Concomitant]
     Dosage: 100MG UNKNOWN
     Route: 048
  4. EDECRIN [Concomitant]
     Dosage: 200MG UNKNOWN
     Route: 048
  5. ULTRAM [Concomitant]
     Dosage: 200MG UNKNOWN
     Route: 048
  6. VERAPAMIL [Concomitant]
     Dosage: 240MG UNKNOWN
     Route: 048
  7. COUMADIN [Concomitant]
  8. GLUCOPHAGE [Concomitant]
     Dosage: 850MG SIX TIMES PER DAY
     Route: 048
  9. DIGOXIN [Concomitant]
     Dosage: .25MG UNKNOWN
     Route: 048
  10. NADOLOL [Concomitant]
     Dosage: 20MG UNKNOWN
     Route: 048

REACTIONS (2)
  - ASTHENIA [None]
  - HYPERSOMNIA [None]
